FAERS Safety Report 23041603 (Version 1)
Quarter: 2023Q4

REPORT INFORMATION
  Report Type: Spontaneous
  Country: BJ (occurrence: BJ)
  Receive Date: 20231007
  Receipt Date: 20231007
  Transmission Date: 20240109
  Serious: Yes (Death)
  Sender: FDA-Public Use
  Company Number: BJ-002147023-NVSC2023BJ216314

PATIENT
  Sex: Male

DRUGS (1)
  1. GLIVEC [Suspect]
     Active Substance: IMATINIB MESYLATE
     Indication: Chronic myeloid leukaemia
     Dosage: 4 DOSAGE FORM (400 MG)
     Route: 065

REACTIONS (1)
  - Death [Fatal]
